FAERS Safety Report 11178080 (Version 1)
Quarter: 2015Q2

REPORT INFORMATION
  Report Type: Spontaneous
  Country: US (occurrence: None)
  Receive Date: 20150515
  Receipt Date: 20150515
  Transmission Date: 20150821
  Serious: Yes (Other)
  Sender: FDA-Public Use
  Company Number: 2015005396

PATIENT
  Age: 55 Year
  Sex: Male
  Weight: 102 kg

DRUGS (8)
  1. VITAMIN D (COLECALCIFEROL) [Concomitant]
  2. FOLIC ACID (FOLIC ACID) [Concomitant]
     Active Substance: FOLIC ACID
  3. CIMZIA [Suspect]
     Active Substance: CERTOLIZUMAB PEGOL
     Indication: CROHN^S DISEASE
     Route: 058
     Dates: start: 2008, end: 20150120
  4. PREDNISONE (PREDNISONE ACETATE) [Concomitant]
  5. METHOTREXATE (METHOTREXATE) [Concomitant]
     Active Substance: METHOTREXATE
  6. MULTIVITAMIN (VITAMINS NOS) [Concomitant]
     Active Substance: VITAMINS
  7. ASACOL [Concomitant]
     Active Substance: MESALAMINE
  8. CALCIUM (CALCIUM GLUCONATE) [Concomitant]

REACTIONS (4)
  - Clostridium difficile infection [None]
  - Sinusitis [None]
  - Pyrexia [None]
  - Diarrhoea [None]

NARRATIVE: CASE EVENT DATE: 20150126
